FAERS Safety Report 26122982 (Version 2)
Quarter: 2025Q4

REPORT INFORMATION
  Report Type: Report from Study
  Country: CO (occurrence: CO)
  Receive Date: 20251204
  Receipt Date: 20251210
  Transmission Date: 20260119
  Serious: No
  Sender: PFIZER
  Company Number: CO-PFIZER INC-202500238033

PATIENT
  Sex: Female

DRUGS (1)
  1. GENOTROPIN [Suspect]
     Active Substance: SOMATROPIN
     Dosage: 0.8 MG, 1X/DAY

REACTIONS (1)
  - Device physical property issue [Unknown]
